FAERS Safety Report 5623770-3 (Version None)
Quarter: 2008Q1

REPORT INFORMATION
  Report Type: 
  Country: None (occurrence: None)
  Receive Date: 20080212
  Receipt Date: 20080201
  Transmission Date: 20080703
  Serious: Yes (Life-Threatening, Hospitalization, Other)
  Sender: FDA-Public Use
  Company Number: US-MERCK-0610USA13512

PATIENT
  Age: 74 Year
  Sex: Female

DRUGS (9)
  1. ZETIA [Suspect]
     Indication: HYPERLIPIDAEMIA
     Route: 048
     Dates: start: 20060301, end: 20060301
  2. ZETIA [Suspect]
     Route: 048
     Dates: start: 20060301
  3. ZETIA [Suspect]
     Route: 048
     Dates: end: 20060301
  4. ZETIA [Suspect]
     Route: 048
     Dates: start: 20060101, end: 20080115
  5. ZETIA [Suspect]
     Indication: BLOOD CHOLESTEROL
     Route: 048
     Dates: start: 20060301, end: 20060301
  6. ZETIA [Suspect]
     Route: 048
     Dates: start: 20060301
  7. ZETIA [Suspect]
     Route: 048
     Dates: end: 20060301
  8. ZETIA [Suspect]
     Route: 048
     Dates: start: 20060101, end: 20080115
  9. [THERAPY UNSPECIFIED] [Concomitant]
     Route: 065

REACTIONS (7)
  - ABDOMINAL PAIN [None]
  - DRUG INEFFECTIVE [None]
  - FATIGUE [None]
  - INAPPROPRIATE SCHEDULE OF DRUG ADMINISTRATION [None]
  - MYOCARDIAL INFARCTION [None]
  - OVERDOSE [None]
  - PAIN [None]
